FAERS Safety Report 15264179 (Version 1)
Quarter: 2018Q3

REPORT INFORMATION
  Report Type: Report from Study
  Country: None (occurrence: US)
  Receive Date: 20180810
  Receipt Date: 20180810
  Transmission Date: 20181010
  Serious: Yes (Other)
  Sender: FDA-Public Use
  Company Number: US-ABBVIE-18K-163-2444129-00

PATIENT
  Age: 50 Year
  Sex: Female

DRUGS (1)
  1. HUMIRA [Suspect]
     Active Substance: ADALIMUMAB
     Indication: ANKYLOSING SPONDYLITIS
     Route: 058
     Dates: start: 20180723

REACTIONS (6)
  - Rash pruritic [Recovering/Resolving]
  - Peripheral swelling [Recovering/Resolving]
  - Rash vesicular [Recovering/Resolving]
  - Pain in extremity [Recovering/Resolving]
  - Arthropod sting [Recovering/Resolving]
  - Systemic lupus erythematosus rash [Unknown]

NARRATIVE: CASE EVENT DATE: 2018
